FAERS Safety Report 10221528 (Version 2)
Quarter: 2014Q2

REPORT INFORMATION
  Report Type: Spontaneous
  Country: DE (occurrence: JP)
  Receive Date: 20140606
  Receipt Date: 20140616
  Transmission Date: 20141212
  Serious: Yes (Other)
  Sender: FDA-Public Use
  Company Number: JP-FRI-1000067906

PATIENT
  Age: 80 Year
  Sex: Female

DRUGS (7)
  1. MEMANTINE [Suspect]
     Indication: DEMENTIA
     Dosage: 5 MG
     Route: 048
     Dates: start: 20130823, end: 201403
  2. MEMANTINE [Suspect]
     Indication: DEMENTIA
     Dosage: 10 MG
     Route: 048
     Dates: start: 201403, end: 2014
  3. MEMANTINE [Suspect]
     Dosage: 5 MG
     Route: 048
     Dates: start: 2014
  4. MAINTATE [Suspect]
  5. NORVASC [Concomitant]
  6. ALINAMIN-F [Concomitant]
  7. CLARITIN [Concomitant]

REACTIONS (4)
  - Dizziness [Recovered/Resolved]
  - Palpitations [Recovered/Resolved]
  - Asthenia [Recovered/Resolved]
  - Nausea [Recovered/Resolved]
